FAERS Safety Report 4319113-8 (Version None)
Quarter: 2004Q1

REPORT INFORMATION
  Report Type: 
  Country: None (occurrence: None)
  Receive Date: 20040318
  Receipt Date: 20040318
  Transmission Date: 20041129
  Serious: Yes (Disabling)
  Sender: FDA-Public Use
  Company Number: None

PATIENT
  Age: 61 Year
  Sex: Male
  Weight: 96 kg

DRUGS (5)
  1. LIPITOR [Suspect]
     Indication: HYPERLIPIDAEMIA
     Dosage: 10 MG DAILY ORAL
     Route: 048
     Dates: start: 20031112, end: 20040115
  2. PLENDIL [Concomitant]
  3. HYDROCHLOROTHIAZIDE [Concomitant]
  4. FOSINOPRIL SODIUM [Concomitant]
  5. ATENOLOL [Concomitant]

REACTIONS (4)
  - BLOOD CREATINE PHOSPHOKINASE INCREASED [None]
  - CONSTIPATION [None]
  - DYSPEPSIA [None]
  - MYALGIA [None]
